FAERS Safety Report 17074178 (Version 1)
Quarter: 2019Q4

REPORT INFORMATION
  Report Type: Spontaneous
  Country: PH (occurrence: PH)
  Receive Date: 20191126
  Receipt Date: 20191126
  Transmission Date: 20200122
  Serious: Yes (Death)
  Sender: FDA-Public Use
  Company Number: PH-ASTELLAS-2019US046535

PATIENT
  Age: 69 Year
  Sex: Male

DRUGS (1)
  1. XTANDI [Suspect]
     Active Substance: ENZALUTAMIDE
     Indication: PROSTATE CANCER
     Route: 065
     Dates: start: 201907, end: 201911

REACTIONS (3)
  - Nasopharyngitis [Unknown]
  - Cough [Unknown]
  - Respiratory disorder [Fatal]

NARRATIVE: CASE EVENT DATE: 20191103
